FAERS Safety Report 6816725-4 (Version None)
Quarter: 2010Q3

REPORT INFORMATION
  Report Type: 
  Country: None (occurrence: None)
  Receive Date: 20100706
  Receipt Date: 20100622
  Transmission Date: 20110219
  Serious: Yes (Hospitalization)
  Sender: FDA-Public Use
  Company Number: PHHY2010FR41001

PATIENT
  Sex: Male

DRUGS (2)
  1. TEGRETOL [Suspect]
     Indication: PARTIAL SEIZURES
     Dosage: 200 MG, BID
     Dates: start: 20100420, end: 20100519
  2. VALPROIC ACID [Concomitant]
     Indication: PARTIAL SEIZURES
     Dosage: 750 MG, QD
     Dates: start: 20080101, end: 20100519

REACTIONS (16)
  - ASTHENIA [None]
  - CARDIAC MURMUR [None]
  - CHILLS [None]
  - DECREASED APPETITE [None]
  - DERMATITIS BULLOUS [None]
  - DRUG RASH WITH EOSINOPHILIA AND SYSTEMIC SYMPTOMS [None]
  - DYSPNOEA [None]
  - HEPATOSPLENOMEGALY [None]
  - LYMPHADENOPATHY [None]
  - OEDEMA PERIPHERAL [None]
  - PYREXIA [None]
  - RASH [None]
  - SKIN EXFOLIATION [None]
  - TACHYCARDIA [None]
  - TACHYPNOEA [None]
  - THIRST [None]
